FAERS Safety Report 10502485 (Version 1)
Quarter: 2014Q4

REPORT INFORMATION
  Report Type: Spontaneous
  Country: US (occurrence: None)
  Receive Date: 20141003
  Receipt Date: 20141003
  Transmission Date: 20150528
  Serious: Yes (Disabling)
  Sender: FDA-Public Use
  Company Number: HA14-355-AE

PATIENT
  Age: 79 Year
  Sex: Male
  Weight: 117.94 kg

DRUGS (10)
  1. GABAPENTIN CAPSULES, USP 300 MG (AMNEAL) [Suspect]
     Active Substance: GABAPENTIN
     Indication: HIP ARTHROPLASTY
     Dosage: 1 CAPSULE
     Route: 048
     Dates: start: 20140916, end: 20140916
  2. HUMALOG 3, 7, 10 [Concomitant]
  3. VITAMIN D [Concomitant]
     Active Substance: CHOLECALCIFEROL
  4. AMLODIPINE 10 MG [Concomitant]
     Active Substance: AMLODIPINE BESYLATE
  5. ENALAPRIL 10 MG [Concomitant]
     Active Substance: ENALAPRIL
  6. ASPIRIN 80 MG COATED [Concomitant]
  7. HYDROCHLOROT 25 MG [Concomitant]
  8. ZETIA 10 MG ONCE A DAY [Concomitant]
  9. GABAPENTIN CAPSULES, USP 300 MG (AMNEAL) [Suspect]
     Active Substance: GABAPENTIN
     Indication: GAIT DISTURBANCE
     Dosage: 1 CAPSULE
     Route: 048
     Dates: start: 20140916, end: 20140916
  10. LANTOS 42 UNITS [Concomitant]

REACTIONS (10)
  - Fall [None]
  - Micturition urgency [None]
  - Blood glucose decreased [None]
  - Erythema [None]
  - Pyrexia [None]
  - Loss of control of legs [None]
  - Tremor [None]
  - Blood pressure systolic increased [None]
  - Movement disorder [None]
  - Pallor [None]

NARRATIVE: CASE EVENT DATE: 20140916
